FAERS Safety Report 12318996 (Version 1)
Quarter: 2016Q2

REPORT INFORMATION
  Report Type: Other
  Country: US (occurrence: US)
  Receive Date: 20160429
  Receipt Date: 20160429
  Transmission Date: 20160815
  Serious: Yes (Hospitalization)
  Sender: FDA-Public Use
  Company Number: US-PROCTER_AND_GAMBLE-GS16049680

PATIENT
  Age: 43 Year
  Sex: Male
  Weight: 63.39 kg

DRUGS (1)
  1. OLDSPICEAPDO+BSPRAY [Suspect]
     Active Substance: ALUMINUM CHLOROHYDRATE OR ALUMINUM ZIRCONIUM TETRACHLOROHYDREX GLY
     Dosage: DAILY APPLICATION OF VARY, ONCE DAILY, APPLIED TO THE SURFACE USUALLY THE SKIN
     Route: 061

REACTIONS (8)
  - Chemical burn of skin [Unknown]
  - Blister [Unknown]
  - Paraesthesia [Unknown]
  - Pruritus [Unknown]
  - Axillary pain [Unknown]
  - Erythema [Unknown]
  - Application site paraesthesia [Unknown]
  - Skin exfoliation [Unknown]
